FAERS Safety Report 9730817 (Version 1)
Quarter: 2013Q4

REPORT INFORMATION
  Report Type: Spontaneous
  Country: JP (occurrence: JP)
  Receive Date: 20131203
  Receipt Date: 20131203
  Transmission Date: 20140711
  Serious: Yes (Other)
  Sender: FDA-Public Use
  Company Number: JP-AMGEN-JPNSP2013084627

PATIENT
  Sex: Female

DRUGS (1)
  1. ENBREL [Suspect]
     Indication: PRODUCT USED FOR UNKNOWN INDICATION
     Dosage: 50 MG, UNK
     Route: 058

REACTIONS (6)
  - Visual field defect [Unknown]
  - Pyrexia [Unknown]
  - Swelling face [Unknown]
  - Facial pain [Unknown]
  - White blood cell count decreased [Unknown]
  - Tooth disorder [Unknown]
